FAERS Safety Report 9542407 (Version 4)
Quarter: 2013Q4

REPORT INFORMATION
  Report Type: Spontaneous
  Country: US (occurrence: None)
  Receive Date: 20130918
  Receipt Date: 20131030
  Transmission Date: 20140711
  Serious: Yes (Other)
  Sender: FDA-Public Use
  Company Number: ADR-2013-01625

PATIENT
  Sex: Female

DRUGS (1)
  1. LIORESAL [Suspect]
     Indication: MUSCLE SPASTICITY

REACTIONS (7)
  - Incision site erythema [None]
  - Device related infection [None]
  - Nasopharyngitis [None]
  - Convulsion [None]
  - Implant site infection [None]
  - Pyrexia [None]
  - Implant site erosion [None]
